FAERS Safety Report 5342139-2 (Version None)
Quarter: 2007Q2

REPORT INFORMATION
  Report Type: 
  Country: None (occurrence: None)
  Receive Date: 20070416
  Receipt Date: 20070313
  Transmission Date: 20071010
  Serious: No
  Sender: FDA-Public Use
  Company Number: 2007SP000904

PATIENT
  Age: 49 Year
  Sex: Female

DRUGS (4)
  1. LUNESTA [Suspect]
     Indication: INSOMNIA
     Dosage: SEE IMAGE
     Route: 048
     Dates: start: 20070301, end: 20070301
  2. LUNESTA [Suspect]
     Indication: INSOMNIA
     Dosage: SEE IMAGE
     Route: 048
     Dates: start: 20070312
  3. ZYPREXA [Concomitant]
  4. AMBIEN [Concomitant]

REACTIONS (4)
  - DIARRHOEA [None]
  - DYSGEUSIA [None]
  - MIDDLE INSOMNIA [None]
  - VOMITING [None]
